FAERS Safety Report 4332580-9 (Version None)
Quarter: 2004Q1

REPORT INFORMATION
  Report Type: 
  Country: None (occurrence: None)
  Receive Date: 20040330
  Receipt Date: 20040316
  Transmission Date: 20041129
  Serious: Yes (Death)
  Sender: FDA-Public Use
  Company Number: FR-JNJFOC-20040305568

PATIENT
  Age: 46 Year
  Sex: Male

DRUGS (2)
  1. INFLIXIMAB (INFLIXIMAB, RECOMBINANT) LYOPHILIZED POWDER [Suspect]
     Indication: CRYOGLOBULINAEMIA
     Dosage: 5 MG/KG, 3 IN, INTRAVENOUS
     Route: 042
  2. INFLIXIMAB (INFLIXIMAB, RECOMBINANT) LYOPHILIZED POWDER [Suspect]
     Indication: VASCULITIS
     Dosage: 5 MG/KG, 3 IN, INTRAVENOUS
     Route: 042

REACTIONS (10)
  - COMA [None]
  - GENERAL PHYSICAL HEALTH DETERIORATION [None]
  - MULTI-ORGAN FAILURE [None]
  - NERVOUS SYSTEM DISORDER [None]
  - NEUROPATHY PERIPHERAL [None]
  - PAIN IN EXTREMITY [None]
  - POLYARTERITIS NODOSA [None]
  - PURPURA [None]
  - SKIN ULCER [None]
  - VASCULITIS NECROTISING [None]
